FAERS Safety Report 19613610 (Version 1)
Quarter: 2021Q3

REPORT INFORMATION
  Report Type: Spontaneous
  Country: US (occurrence: US)
  Receive Date: 20210724
  Receipt Date: 20210724
  Transmission Date: 20211014
  Serious: No
  Sender: FDA-Public Use
  Company Number: None

PATIENT
  Age: 42 Year
  Sex: Female
  Weight: 63 kg

DRUGS (3)
  1. VINCRISTINE SULFATE. [Suspect]
     Active Substance: VINCRISTINE SULFATE
     Dates: end: 20210202
  2. LOMUSTINE (CCNU) [Suspect]
     Active Substance: LOMUSTINE
     Dates: end: 20210511
  3. PROCARBAZINE [Suspect]
     Active Substance: PROCARBAZINE
     Dates: end: 20210601

REACTIONS (3)
  - Neutrophil count decreased [None]
  - Platelet count decreased [None]
  - Therapy interrupted [None]

NARRATIVE: CASE EVENT DATE: 20210714
